FAERS Safety Report 6682520-2 (Version None)
Quarter: 2010Q2

REPORT INFORMATION
  Report Type: 
  Country: None (occurrence: None)
  Receive Date: 20100415
  Receipt Date: 20100407
  Transmission Date: 20101027
  Serious: Yes (Death, Life-Threatening, Hospitalization, Congenital Anomaly, Other)
  Sender: FDA-Public Use
  Company Number: ZA-NOVOPROD-304118

PATIENT
  Sex: Male
  Weight: 3.48 kg

DRUGS (7)
  1. LEVEMIR [Suspect]
     Indication: TYPE 1 DIABETES MELLITUS
     Dosage: 14 U, UNK
     Route: 064
     Dates: start: 20090410
  2. LEVEMIR [Suspect]
     Dosage: 30 U, UNK
  3. NOVORAPID FLEXPEN [Suspect]
     Indication: TYPE 1 DIABETES MELLITUS
     Dosage: 9 U, UNK
     Route: 064
     Dates: start: 20000101
  4. NOVORAPID FLEXPEN [Suspect]
     Dosage: 18 U, UNK
  5. INSULIN GLARGINE [Concomitant]
     Indication: TYPE 1 DIABETES MELLITUS
     Route: 064
     Dates: start: 20000101, end: 20090410
  6. PROGESTERONE [Concomitant]
     Dosage: UNK
     Route: 064
     Dates: start: 20090331
  7. CELESTONE                          /00008501/ [Concomitant]
     Dosage: UNK
     Route: 064
     Dates: start: 20091105

REACTIONS (7)
  - ATRIAL SEPTAL DEFECT [None]
  - CRYPTORCHISM [None]
  - DRUG EXPOSURE DURING PREGNANCY [None]
  - HYPOGLYCAEMIA [None]
  - PATENT DUCTUS ARTERIOSUS [None]
  - TRANSPOSITION OF THE GREAT VESSELS [None]
  - VENTRICULAR SEPTAL DEFECT [None]
